FAERS Safety Report 26027295 (Version 1)
Quarter: 2025Q4

REPORT INFORMATION
  Report Type: Spontaneous
  Country: US (occurrence: US)
  Receive Date: 20251111
  Receipt Date: 20251111
  Transmission Date: 20260118
  Serious: Yes (Life-Threatening, Hospitalization, Other)
  Sender: Day One Biopharmaceuticals
  Company Number: US-Day One Biopharmaceuticals Inc.-2025US001788

PATIENT

DRUGS (1)
  1. OJEMDA [Suspect]
     Active Substance: TOVORAFENIB
     Indication: Langerhans^ cell histiocytosis
     Dosage: UNKNOWN
     Route: 065
     Dates: start: 2025

REACTIONS (4)
  - Septic shock [Unknown]
  - Off label use [Unknown]
  - Rash [Unknown]
  - Hair colour changes [Unknown]

NARRATIVE: CASE EVENT DATE: 20250101
